FAERS Safety Report 9425435 (Version 1)
Quarter: 2013Q3

REPORT INFORMATION
  Report Type: Spontaneous
  Country: US (occurrence: US)
  Receive Date: 20130729
  Receipt Date: 20130729
  Transmission Date: 20140515
  Serious: Yes (Other)
  Sender: FDA-Public Use
  Company Number: US-MERCK-1307USA015450

PATIENT
  Sex: Male

DRUGS (5)
  1. JANUVIA [Suspect]
     Indication: DIABETES MELLITUS
     Dosage: UNK
     Route: 048
  2. GLIPIZIDE [Concomitant]
     Dosage: 2.5 MG, BID
  3. AMLODIPINE [Concomitant]
     Dosage: 5 MG, QD
  4. ZOCOR [Concomitant]
     Dosage: 20 MG, QD
  5. ALLOPURINOL [Concomitant]
     Dosage: 300 MG, QD

REACTIONS (2)
  - Pancreatitis [Not Recovered/Not Resolved]
  - Wrong technique in drug usage process [Unknown]
